FAERS Safety Report 4293987-1 (Version None)
Quarter: 2004Q1

REPORT INFORMATION
  Report Type: 
  Country: None (occurrence: None)
  Receive Date: 20040212
  Receipt Date: 20031105
  Transmission Date: 20041129
  Serious: Yes (Disabling)
  Sender: FDA-Public Use
  Company Number: WAES 0311GBR00056

PATIENT
  Age: 45 Year
  Sex: Female

DRUGS (3)
  1. [THERAPY UNSPECIFIED] [Concomitant]
  2. ZOCOR [Suspect]
     Indication: TYPE IIA HYPERLIPIDAEMIA
     Route: 048
     Dates: start: 19980101, end: 19990901
  3. ZOCOR [Suspect]
     Route: 048
     Dates: start: 19990901, end: 20000101

REACTIONS (6)
  - ABASIA [None]
  - CONGESTIVE CARDIOMYOPATHY [None]
  - FATIGUE [None]
  - LETHARGY [None]
  - MYOCARDIAL INFARCTION [None]
  - PERIARTHRITIS [None]
